FAERS Safety Report 10697837 (Version 2)
Quarter: 2015Q1

REPORT INFORMATION
  Report Type: Spontaneous
  Country: US (occurrence: US)
  Receive Date: 20150108
  Receipt Date: 20150108
  Transmission Date: 20150721
  Serious: No
  Sender: FDA-Public Use
  Company Number: US-ELI_LILLY_AND_COMPANY-US201410000460

PATIENT
  Sex: Female

DRUGS (2)
  1. CIALIS [Suspect]
     Active Substance: TADALAFIL
     Indication: CORONARY ARTERY DISEASE
     Dosage: 5 MG, EVERY THREE DAYS
     Route: 065
     Dates: start: 201411
  2. CIALIS [Suspect]
     Active Substance: TADALAFIL
     Indication: CHEST PAIN

REACTIONS (2)
  - Tinnitus [Unknown]
  - Off label use [Unknown]
